FAERS Safety Report 13758779 (Version 1)
Quarter: 2017Q3

REPORT INFORMATION
  Report Type: Spontaneous
  Country: US (occurrence: US)
  Receive Date: 20170717
  Receipt Date: 20170717
  Transmission Date: 20171127
  Serious: No
  Sender: FDA-Public Use
  Company Number: None

PATIENT
  Age: 51 Year
  Sex: Female
  Weight: 77.18 kg

DRUGS (1)
  1. SUBOXONE [Suspect]
     Active Substance: BUPRENORPHINE HYDROCHLORIDE\NALOXONE HYDROCHLORIDE
     Indication: DRUG DEPENDENCE
     Route: 048

REACTIONS (8)
  - Withdrawal syndrome [None]
  - Chronic obstructive pulmonary disease [None]
  - Atrial fibrillation [None]
  - Pneumonia [None]
  - Flushing [None]
  - Vomiting [None]
  - Feeling cold [None]
  - Headache [None]

NARRATIVE: CASE EVENT DATE: 20170715
